FAERS Safety Report 7714672-7 (Version None)
Quarter: 2011Q3

REPORT INFORMATION
  Report Type: 
  Country: None (occurrence: None)
  Receive Date: 20110804
  Receipt Date: 20110421
  Transmission Date: 20111222
  Serious: No
  Sender: FDA-Public Use
  Company Number: 2011-05580

PATIENT
  Age: 61 Year
  Sex: Male
  Weight: 79.4 kg

DRUGS (3)
  1. NORVASC /00972401/ (AMLODIPINE) [Concomitant]
  2. SULFAMETHOXAZOLE AND TRIMETHOPRIM [Concomitant]
  3. RAPAFLO [Suspect]
     Indication: BLADDER DISORDER
     Dosage: 4 MG, DAILY, ORAL
     Route: 048
     Dates: start: 20101101, end: 20110412

REACTIONS (6)
  - TENSION [None]
  - RETROGRADE EJACULATION [None]
  - FEAR [None]
  - BLADDER DISORDER [None]
  - ANXIETY [None]
  - DRUG INEFFECTIVE [None]
